FAERS Safety Report 24591960 (Version 3)
Quarter: 2025Q1

REPORT INFORMATION
  Report Type: Spontaneous
  Country: JP (occurrence: JP)
  Receive Date: 20241108
  Receipt Date: 20250223
  Transmission Date: 20250408
  Serious: Yes (Death, Life-Threatening, Hospitalization, Other)
  Sender: JOHNSON AND JOHNSON
  Company Number: JP-JNJFOC-20241118257

PATIENT
  Age: 68 Year
  Sex: Female
  Weight: 42 kg

DRUGS (21)
  1. SIMPONI [Suspect]
     Active Substance: GOLIMUMAB
     Indication: Rheumatoid arthritis
     Route: 058
     Dates: start: 201909, end: 20240619
  2. PREDONINE [Suspect]
     Active Substance: PREDNISOLONE
     Indication: Rheumatoid arthritis
     Route: 048
  3. PREDONINE [Suspect]
     Active Substance: PREDNISOLONE
     Route: 048
  4. MONTELUKAST SODIUM [Concomitant]
     Active Substance: MONTELUKAST SODIUM
     Indication: Product used for unknown indication
     Route: 048
  5. MONTELUKAST SODIUM [Concomitant]
     Active Substance: MONTELUKAST SODIUM
     Route: 048
  6. CARBIMAZOLE [Concomitant]
     Active Substance: CARBIMAZOLE
     Indication: Product used for unknown indication
     Route: 048
  7. CARBIMAZOLE [Concomitant]
     Active Substance: CARBIMAZOLE
     Route: 048
  8. VONOPRAZAN FUMARATE [Concomitant]
     Active Substance: VONOPRAZAN FUMARATE
     Indication: Prophylaxis
     Route: 048
  9. VONOPRAZAN FUMARATE [Concomitant]
     Active Substance: VONOPRAZAN FUMARATE
     Route: 048
  10. ELDECALCITOL [Concomitant]
     Active Substance: ELDECALCITOL
     Indication: Prophylaxis
     Route: 048
  11. ELDECALCITOL [Concomitant]
     Active Substance: ELDECALCITOL
     Route: 048
  12. SYMBICORT [Concomitant]
     Active Substance: BUDESONIDE\FORMOTEROL FUMARATE DIHYDRATE
     Indication: Product used for unknown indication
     Route: 055
  13. SPIRONOLACTONE [Concomitant]
     Active Substance: SPIRONOLACTONE
     Indication: Product used for unknown indication
     Route: 048
  14. SPIRONOLACTONE [Concomitant]
     Active Substance: SPIRONOLACTONE
     Route: 048
  15. FUROSEMIDE [Concomitant]
     Active Substance: FUROSEMIDE
     Indication: Product used for unknown indication
     Route: 048
  16. FUROSEMIDE [Concomitant]
     Active Substance: FUROSEMIDE
     Route: 048
  17. EDOXABAN TOSYLATE [Concomitant]
     Active Substance: EDOXABAN TOSYLATE
     Indication: Product used for unknown indication
     Route: 048
  18. EDOXABAN TOSYLATE [Concomitant]
     Active Substance: EDOXABAN TOSYLATE
     Route: 048
  19. AMIODARONE HYDROCHLORIDE [Concomitant]
     Active Substance: AMIODARONE HYDROCHLORIDE
     Indication: Product used for unknown indication
     Route: 048
  20. AMIODARONE HYDROCHLORIDE [Concomitant]
     Active Substance: AMIODARONE HYDROCHLORIDE
     Route: 048
  21. BISOPROLOL FUMARATE [Concomitant]
     Active Substance: BISOPROLOL FUMARATE
     Indication: Product used for unknown indication
     Route: 048
     Dates: start: 20240619

REACTIONS (5)
  - Cardiac failure [Fatal]
  - Melaena [Not Recovered/Not Resolved]
  - Gastrointestinal perforation [Recovered/Resolved with Sequelae]
  - Atrial fibrillation [Not Recovered/Not Resolved]
  - Herpes zoster [Recovered/Resolved]

NARRATIVE: CASE EVENT DATE: 20200501
